FAERS Safety Report 7283408-9 (Version None)
Quarter: 2011Q1

REPORT INFORMATION
  Report Type: 
  Country: None (occurrence: None)
  Receive Date: 20110209
  Receipt Date: 20100929
  Transmission Date: 20110831
  Serious: No
  Sender: FDA-Public Use
  Company Number: A0884023A

PATIENT
  Age: 57 Year
  Sex: Female

DRUGS (4)
  1. BLOOD PRESSURE MEDICATION [Concomitant]
  2. ANTI-CHOLESTEROL MEDICATION [Concomitant]
  3. PAROXETINE HCL [Suspect]
     Indication: DEPRESSION
     Route: 048
     Dates: start: 20100401, end: 20100901
  4. DIABETES MEDICATION [Concomitant]

REACTIONS (1)
  - DRUG INEFFECTIVE [None]
